FAERS Safety Report 8304655 (Version 5)
Quarter: 2013Q1

REPORT INFORMATION
  Report Type: Spontaneous
  Country: US (occurrence: US)
  Receive Date: 20111221
  Receipt Date: 20130215
  Transmission Date: 20140127
  Serious: Yes (Other)
  Sender: FDA-Public Use
  Company Number: US-ROCHE-1022760

PATIENT
  Age: 66 Year
  Sex: Female

DRUGS (2)
  1. BONIVA [Suspect]
     Indication: OSTEOPENIA
     Route: 048
     Dates: start: 20070611
  2. ACTONEL [Suspect]
     Indication: OSTEOPENIA
     Route: 048
     Dates: start: 20051210, end: 20070525

REACTIONS (5)
  - Osteonecrosis of jaw [Unknown]
  - Anxiety [Unknown]
  - Tooth infection [Unknown]
  - Diverticulum [Recovered/Resolved]
  - Nausea [Unknown]
